FAERS Safety Report 7101969-7 (Version None)
Quarter: 2010Q4

REPORT INFORMATION
  Report Type: 
  Country: None (occurrence: None)
  Receive Date: 20101115
  Receipt Date: 20101108
  Transmission Date: 20110411
  Serious: Yes (Other)
  Sender: FDA-Public Use
  Company Number: US-SANOFI-AVENTIS-2010SA068899

PATIENT
  Sex: Female
  Weight: 59 kg

DRUGS (8)
  1. MULTAQ [Suspect]
     Indication: ATRIAL FIBRILLATION
     Route: 048
     Dates: start: 20101025
  2. WARFARIN [Suspect]
     Dosage: 5 MG FOUR TIMES A WEEK,2.5 MG 3 TIMES A WEEK
     Route: 048
     Dates: end: 20101103
  3. WARFARIN [Suspect]
     Dosage: 5 MG TWICE A WEEK, 2.5 MG 5 DAYS A WEEK
     Route: 048
     Dates: start: 20101103
  4. TOPROL-XL [Concomitant]
     Dates: start: 20090101
  5. CALCIUM [Concomitant]
  6. MULTI-VITAMINS [Concomitant]
  7. THYROID HORMONES [Concomitant]
  8. CHONDROITIN SULFATE [Concomitant]

REACTIONS (2)
  - DIARRHOEA [None]
  - INTERNATIONAL NORMALISED RATIO INCREASED [None]
